FAERS Safety Report 5353225-5 (Version None)
Quarter: 2007Q2

REPORT INFORMATION
  Report Type: 
  Country: None (occurrence: None)
  Receive Date: 20070608
  Receipt Date: 20070529
  Transmission Date: 20071010
  Serious: Yes (Hospitalization)
  Sender: FDA-Public Use
  Company Number: 2005BI021237

PATIENT
  Age: 45 Year
  Sex: Female

DRUGS (1)
  1. AVONEX [Suspect]
     Indication: MULTIPLE SCLEROSIS
     Dosage: 30 UG;QW;IM
     Route: 030
     Dates: start: 20020517

REACTIONS (7)
  - COLITIS [None]
  - INTESTINAL FUNCTIONAL DISORDER [None]
  - MULTIPLE SCLEROSIS RELAPSE [None]
  - ORGAN FAILURE [None]
  - PNEUMONIA [None]
  - SMALL INTESTINAL OBSTRUCTION [None]
  - SURGERY [None]
